FAERS Safety Report 5139363-0 (Version None)
Quarter: 2006Q4

REPORT INFORMATION
  Report Type: 
  Country: None (occurrence: None)
  Receive Date: 20061026
  Receipt Date: 20061026
  Transmission Date: 20070319
  Serious: Yes (Life-Threatening, Hospitalization, Other)
  Sender: FDA-Public Use
  Company Number: None

PATIENT
  Sex: Female
  Weight: 51.2565 kg

DRUGS (6)
  1. TAXOL [Suspect]
     Indication: UTERINE CANCER
     Dosage: 135MG/M2 IN 300ML NS  X1   IV
     Route: 042
     Dates: start: 20061003
  2. DECADRON [Concomitant]
  3. ZOFRAN [Concomitant]
  4. BENADRYL [Concomitant]
  5. PEPCID [Concomitant]
  6. ATIVAN [Concomitant]

REACTIONS (2)
  - DYSPNOEA [None]
  - INFUSION RELATED REACTION [None]
